FAERS Safety Report 8911915 (Version 1)
Quarter: 2012Q4

REPORT INFORMATION
  Report Type: 
  Country: US (occurrence: US)
  Receive Date: 20121115
  Receipt Date: 20121115
  Transmission Date: 20130627
  Serious: No
  Sender: FDA-Public Use
  Company Number: US-ASTRAZENECA-2012SE84471

PATIENT
  Age: 48 Year
  Sex: Female

DRUGS (11)
  1. SEROQUEL [Suspect]
     Route: 048
  2. SEROQUEL [Suspect]
     Route: 048
  3. LORAZEPAM [Concomitant]
     Route: 048
  4. LORAZEPAM [Concomitant]
     Route: 048
  5. ZOLOFT [Concomitant]
     Route: 048
  6. LIPITOR [Concomitant]
  7. NAPROXEN [Concomitant]
  8. SIMVASTATIN [Concomitant]
  9. BENADRYL [Concomitant]
  10. PREDNISONE [Concomitant]
  11. METHYLPHENIDATE [Concomitant]

REACTIONS (11)
  - Menorrhagia [Unknown]
  - Essential hypertension [Unknown]
  - Depression [Unknown]
  - Insomnia [Unknown]
  - Type 2 diabetes mellitus [Unknown]
  - Ear pain [Unknown]
  - Anxiety [Unknown]
  - Amenorrhoea [Unknown]
  - Arthralgia [Unknown]
  - Rash [Unknown]
  - Hyperlipidaemia [Unknown]
